FAERS Safety Report 18781339 (Version 2)
Quarter: 2021Q1

REPORT INFORMATION
  Report Type: Other
  Country: CA (occurrence: CA)
  Receive Date: 20210125
  Receipt Date: 20210222
  Transmission Date: 20210419
  Serious: Yes (Other)
  Sender: FDA-Public Use
  Company Number: CA-APOTEX-2021AP001509

PATIENT
  Age: 4 Year
  Sex: Female

DRUGS (1)
  1. APO?RANITIDINE [Suspect]
     Active Substance: RANITIDINE
     Indication: GASTROOESOPHAGEAL REFLUX DISEASE
     Dosage: 4.5 MILLILITER, QD
     Route: 048

REACTIONS (5)
  - Vomiting [Recovering/Resolving]
  - Epistaxis [Recovering/Resolving]
  - Product colour issue [Recovering/Resolving]
  - Rhinorrhoea [Recovering/Resolving]
  - Diarrhoea [Recovering/Resolving]
